FAERS Safety Report 7815253-7 (Version None)
Quarter: 2011Q4

REPORT INFORMATION
  Report Type: 
  Country: None (occurrence: None)
  Receive Date: 20111014
  Receipt Date: 20111011
  Transmission Date: 20120403
  Serious: Yes (Death)
  Sender: FDA-Public Use
  Company Number: GB-JNJFOC-20040105182

PATIENT
  Age: 50 Year
  Sex: Male

DRUGS (2)
  1. RADIATION THERAPY [Suspect]
     Indication: TONGUE NEOPLASM MALIGNANT STAGE UNSPECIFIED
     Dosage: TOTAL OF 22 GY
  2. DOXORUBICIN HYDROCHLORIDE [Suspect]
     Indication: TONGUE NEOPLASM MALIGNANT STAGE UNSPECIFIED
     Dosage: 40 MG/M2 EVERY 3 WEEKS X2 CYCLES
     Route: 042

REACTIONS (2)
  - METASTASES TO LIVER [None]
  - OESOPHAGEAL CARCINOMA [None]
